FAERS Safety Report 5515379-7 (Version None)
Quarter: 2007Q4

REPORT INFORMATION
  Report Type: 
  Country: None (occurrence: None)
  Receive Date: 20071109
  Receipt Date: 20071029
  Transmission Date: 20080405
  Serious: Yes (Disabling)
  Sender: FDA-Public Use
  Company Number: 100#03#2007-04493

PATIENT
  Age: 68 Year
  Sex: Male

DRUGS (5)
  1. CIPROFLOXACIN [Suspect]
     Indication: PROSTATITIS
     Dosage: 500 MG TWICE A DAY ORAL
     Route: 048
     Dates: start: 20060901, end: 20061001
  2. ATORVASTATIN (ATORVASTATIN) (ATORVASTATIN) [Concomitant]
  3. SOLPADOL (PANADEINE CO) (CODEINE PHOSPHATE, DIPHENYLPYRALINE HYDROCHLO [Concomitant]
  4. TEMAZEPAM [Concomitant]
  5. TRIMETHORPRIM (TRIMETHOPRIM) (TRIMETHOPRIM) [Concomitant]

REACTIONS (4)
  - CONDITION AGGRAVATED [None]
  - INTERCOSTAL NEURALGIA [None]
  - TINNITUS [None]
  - TREMOR [None]
